FAERS Safety Report 5115314-X (Version None)
Quarter: 2006Q3

REPORT INFORMATION
  Report Type: 
  Country: None (occurrence: None)
  Receive Date: 20060920
  Receipt Date: 20060914
  Transmission Date: 20061208
  Serious: Yes (Other)
  Sender: FDA-Public Use
  Company Number: HQWYE684114SEP06

PATIENT
  Age: 53 Year
  Sex: Male

DRUGS (3)
  1. PANTOPRAZOLE SODIUM [Suspect]
     Indication: DUODENITIS
     Dosage: 40 MG 1X PER 1 DAY
     Route: 048
     Dates: start: 20060529, end: 20060606
  2. PANTOPRAZOLE SODIUM [Suspect]
     Indication: GASTRITIS
     Dosage: 40 MG 1X PER 1 DAY
     Route: 048
     Dates: start: 20060529, end: 20060606
  3. NAPROXEN [Concomitant]

REACTIONS (1)
  - PAPILLOEDEMA [None]
